FAERS Safety Report 18109245 (Version 1)
Quarter: 2020Q3

REPORT INFORMATION
  Report Type: Spontaneous
  Country: US (occurrence: US)
  Receive Date: 20200804
  Receipt Date: 20200804
  Transmission Date: 20201103
  Serious: No
  Sender: FDA-Public Use
  Company Number: US-009507513-2007USA001794

PATIENT
  Sex: Male

DRUGS (12)
  1. REBETOL [Suspect]
     Active Substance: RIBAVIRIN
     Dosage: UNK
     Route: 048
  2. VELPATASVIR [Suspect]
     Active Substance: VELPATASVIR
     Indication: HEPATITIS C
     Dosage: UNK
  3. REBETOL [Suspect]
     Active Substance: RIBAVIRIN
     Indication: HEPATITIS C
     Dosage: UNK
     Route: 048
  4. SOFOSBUVIR [Suspect]
     Active Substance: SOFOSBUVIR
     Indication: HEPATITIS C
     Dosage: UNK
  5. DACLATASVIR. [Suspect]
     Active Substance: DACLATASVIR
     Indication: HEPATITIS C
     Dosage: UNK
  6. REBETOL [Suspect]
     Active Substance: RIBAVIRIN
     Dosage: UNK
     Route: 048
  7. VOXILAPREVIR [Suspect]
     Active Substance: VOXILAPREVIR
     Indication: HEPATITIS C
     Dosage: UNK
  8. SOFOSBUVIR [Suspect]
     Active Substance: SOFOSBUVIR
     Dosage: UNK
  9. VELPATASVIR [Suspect]
     Active Substance: VELPATASVIR
     Dosage: UNK
  10. SOFOSBUVIR [Suspect]
     Active Substance: SOFOSBUVIR
     Dosage: UNK
  11. INTERFERON GAMMA NOS [Concomitant]
     Active Substance: INTERFERON GAMMA
     Dosage: UNK
  12. REBETOL [Suspect]
     Active Substance: RIBAVIRIN
     Dosage: UNK
     Route: 048

REACTIONS (1)
  - Treatment failure [Unknown]
